FAERS Safety Report 15734486 (Version 1)
Quarter: 2018Q4

REPORT INFORMATION
  Report Type: Spontaneous
  Country: US (occurrence: US)
  Receive Date: 20181218
  Receipt Date: 20181218
  Transmission Date: 20190205
  Serious: No
  Sender: FDA-Public Use
  Company Number: US-HORIZON-DUE-0703-2018

PATIENT
  Sex: Male

DRUGS (2)
  1. PENNSAID [Concomitant]
     Active Substance: DICLOFENAC SODIUM
     Indication: ARTHRALGIA
  2. DUEXIS [Suspect]
     Active Substance: FAMOTIDINE\IBUPROFEN
     Indication: FOOT OPERATION
     Dosage: 1 TABLET 2-3 TIMES A DAY
     Route: 048

REACTIONS (3)
  - Off label use [Unknown]
  - Pain [Unknown]
  - Therapy cessation [Unknown]
